FAERS Safety Report 5142452-8 (Version None)
Quarter: 2006Q4

REPORT INFORMATION
  Report Type: 
  Country: None (occurrence: None)
  Receive Date: 20061027
  Receipt Date: 20061020
  Transmission Date: 20070319
  Serious: Yes (Hospitalization)
  Sender: FDA-Public Use
  Company Number: S06-USA-04405-01

PATIENT
  Age: 16 Year
  Sex: Female

DRUGS (13)
  1. LEXAPRO [Suspect]
     Indication: ANXIETY
     Dosage: 15 MG QD PO
     Route: 048
     Dates: start: 20060701, end: 20060101
  2. LEXAPRO [Suspect]
     Indication: DEPRESSION
     Dosage: 15 MG QD PO
     Route: 048
     Dates: start: 20060701, end: 20060101
  3. LEXAPRO [Suspect]
     Indication: ANXIETY
     Dosage: 20 MG QD PO
     Route: 048
     Dates: start: 20060101, end: 20060101
  4. LEXAPRO [Suspect]
     Indication: DEPRESSION
     Dosage: 20 MG QD PO
     Route: 048
     Dates: start: 20060101, end: 20060101
  5. LEXAPRO [Suspect]
     Indication: ANXIETY
     Dates: start: 20060101, end: 20060101
  6. LEXAPRO [Suspect]
     Indication: DEPRESSION
     Dates: start: 20060101, end: 20060101
  7. LEXAPRO [Suspect]
     Indication: ANXIETY
     Dosage: 10 MG QD PO
     Route: 048
     Dates: start: 20060101
  8. LEXAPRO [Suspect]
     Indication: DEPRESSION
     Dosage: 10 MG QD PO
     Route: 048
     Dates: start: 20060101
  9. LEXAPRO [Suspect]
     Indication: ANXIETY
     Dosage: 10 MG QD PO
     Route: 048
     Dates: start: 20060101, end: 20060701
  10. LEXAPRO [Suspect]
     Indication: DEPRESSION
     Dosage: 10 MG QD PO
     Route: 048
     Dates: start: 20060101, end: 20060701
  11. YASMIN [Suspect]
     Indication: POLYCYSTIC OVARIES
     Dates: end: 20060821
  12. ABILIFY [Concomitant]
  13. CABATROL (CARBAMAZEPINE) [Concomitant]

REACTIONS (4)
  - ABASIA [None]
  - FOOT FRACTURE [None]
  - MOBILITY DECREASED [None]
  - PULMONARY EMBOLISM [None]
